FAERS Safety Report 9735172 (Version 2)
Quarter: 2013Q4

REPORT INFORMATION
  Report Type: Report from Study
  Country: DE (occurrence: DE)
  Receive Date: 20131206
  Receipt Date: 20131206
  Transmission Date: 20140711
  Serious: Yes (Hospitalization)
  Sender: FDA-Public Use
  Company Number: DE-ASTELLAS-2012EU006012

PATIENT
  Sex: Male
  Weight: 88 kg

DRUGS (11)
  1. TACROLIMUS MR4 CAPSULES [Suspect]
     Indication: RENAL TRANSPLANT
     Dosage: 8 MG, UID/QD
     Route: 048
     Dates: start: 20120722
  2. CELLCEPT /01275102/ [Suspect]
     Indication: RENAL TRANSPLANT
     Dosage: 1000 MG, BID
     Route: 048
     Dates: start: 20120722
  3. SIMULECT [Suspect]
     Indication: RENAL TRANSPLANT
     Dosage: 20 MG, UID/QD
     Route: 042
     Dates: start: 20120722
  4. PREDNISOLON /00016201/ [Suspect]
     Indication: RENAL TRANSPLANT
     Dosage: 15 MG, UID/QD
     Route: 048
     Dates: start: 20120722
  5. PANTOZOL                           /01263204/ [Concomitant]
     Dosage: 40 MG, UNKNOWN/D
     Route: 065
  6. KEPINOL [Concomitant]
     Dosage: 480 MG, OTHER
     Route: 065
  7. COLECALCIFEROL [Concomitant]
     Dosage: 1000 IU, UNKNOWN/D
     Route: 065
  8. MANICOL [Concomitant]
     Dosage: UNK
     Route: 065
  9. SPIRIVA [Concomitant]
     Dosage: UNK
     Route: 065
  10. ACTRAPID                           /00646001/ [Concomitant]
     Dosage: UNK
     Route: 065
  11. VALCYTE [Concomitant]
     Dosage: 450 MG, UNKNOWN/D
     Route: 065

REACTIONS (1)
  - Transplant failure [Recovered/Resolved]
